FAERS Safety Report 12499861 (Version 2)
Quarter: 2016Q3

REPORT INFORMATION
  Report Type: Spontaneous
  Country: JP (occurrence: JP)
  Receive Date: 20160627
  Receipt Date: 20160705
  Transmission Date: 20161109
  Serious: Yes (Other)
  Sender: FDA-Public Use
  Company Number: JP-ASTELLAS-2016JP010142

PATIENT
  Sex: Female

DRUGS (2)
  1. PROGRAF [Suspect]
     Active Substance: TACROLIMUS\TACROLIMUS ANHYDROUS
     Indication: MYASTHENIA GRAVIS
     Dosage: UNK UNK, UNKNOWN FREQ.
     Route: 048
  2. RAPALIMUS [Concomitant]
     Indication: PRODUCT USED FOR UNKNOWN INDICATION
     Route: 065

REACTIONS (1)
  - Cervical conisation [Unknown]
